FAERS Safety Report 4809504-0 (Version None)
Quarter: 2005Q4

REPORT INFORMATION
  Report Type: 
  Country: None (occurrence: None)
  Receive Date: 20051021
  Receipt Date: 20050112
  Transmission Date: 20060501
  Serious: Yes (Other)
  Sender: FDA-Public Use
  Company Number: US_0501110101

PATIENT
  Age: 26 Year
  Sex: Male

DRUGS (2)
  1. ZYPREXA [Suspect]
     Indication: SCHIZOPHRENIA
     Dates: start: 20041201
  2. CLOZAPINE [Concomitant]

REACTIONS (1)
  - DEEP VEIN THROMBOSIS [None]
